FAERS Safety Report 5733909-7 (Version None)
Quarter: 2008Q2

REPORT INFORMATION
  Report Type: 
  Country: None (occurrence: None)
  Receive Date: 20080509
  Receipt Date: 20080507
  Transmission Date: 20081010
  Serious: Yes (Death)
  Sender: FDA-Public Use
  Company Number: US-BOEHRINGER INGELHEIM GMBH, GERMANY-2008-BP-07254RO

PATIENT
  Age: 2 Year
  Sex: Male

DRUGS (1)
  1. METHADONE HCL [Suspect]
     Route: 048
     Dates: start: 20080309

REACTIONS (2)
  - ACCIDENTAL OVERDOSE [None]
  - LOSS OF CONSCIOUSNESS [None]
